FAERS Safety Report 16406258 (Version 1)
Quarter: 2019Q2

REPORT INFORMATION
  Report Type: Spontaneous
  Country: US (occurrence: US)
  Receive Date: 20190607
  Receipt Date: 20190607
  Transmission Date: 20190711
  Serious: Yes (Hospitalization)
  Sender: FDA-Public Use
  Company Number: US-ALLERGAN-1850609US

PATIENT
  Sex: Female
  Weight: 52.16 kg

DRUGS (6)
  1. FERRITIN [Concomitant]
     Active Substance: FERRITIN
     Indication: ABDOMINAL DISTENSION
     Route: 065
  2. IRON [Concomitant]
     Active Substance: IRON
     Indication: ABDOMINAL DISTENSION
  3. FERRITIN [Concomitant]
     Active Substance: FERRITIN
     Indication: COELIAC DISEASE
  4. IRON [Concomitant]
     Active Substance: IRON
     Indication: COELIAC DISEASE
  5. VIBERZI [Suspect]
     Active Substance: ELUXADOLINE
     Indication: IRRITABLE BOWEL SYNDROME
     Dosage: 75 MG, BID
     Route: 048
     Dates: start: 20161121
  6. CELEXA [Concomitant]
     Active Substance: CITALOPRAM HYDROBROMIDE
     Indication: PRODUCT USED FOR UNKNOWN INDICATION
     Dosage: 20 MG, QHS
     Route: 065

REACTIONS (1)
  - Pancreatitis [Unknown]
